FAERS Safety Report 13707021 (Version 2)
Quarter: 2017Q4

REPORT INFORMATION
  Report Type: Spontaneous
  Country: US (occurrence: US)
  Receive Date: 20170630
  Receipt Date: 20171009
  Transmission Date: 20180320
  Serious: Yes (Other)
  Sender: FDA-Public Use
  Company Number: US-GLAXOSMITHKLINE-US2017GSK100820

PATIENT
  Age: 56 Year
  Sex: Female

DRUGS (1)
  1. LOVAZA [Suspect]
     Active Substance: OMEGA-3-ACID ETHYL ESTERS
     Indication: BLOOD TRIGLYCERIDES INCREASED
     Dosage: 1 G, U
     Dates: start: 2010

REACTIONS (2)
  - Neoplasm malignant [Unknown]
  - Cancer surgery [Unknown]

NARRATIVE: CASE EVENT DATE: 20150715
